FAERS Safety Report 4297460-6 (Version None)
Quarter: 2004Q1

REPORT INFORMATION
  Report Type: 
  Country: None (occurrence: None)
  Receive Date: 20040213
  Receipt Date: 20031129
  Transmission Date: 20041129
  Serious: Yes (Other)
  Sender: FDA-Public Use
  Company Number: PHEH2003US10992

PATIENT
  Age: 43 Year
  Sex: Male
  Weight: 77.1 kg

DRUGS (2)
  1. DIOVAN [Suspect]
     Indication: HYPERTENSION
     Dosage: 40 MG, QD, ORAL
     Route: 048
     Dates: end: 20031101
  2. FUROSEMIDE [Concomitant]

REACTIONS (6)
  - BLOOD CREATININE INCREASED [None]
  - BLOOD PRESSURE INADEQUATELY CONTROLLED [None]
  - DIFFICULTY IN WALKING [None]
  - DYSPEPSIA [None]
  - FATIGUE [None]
  - MUSCULAR WEAKNESS [None]
